FAERS Safety Report 12130931 (Version 4)
Quarter: 2020Q4

REPORT INFORMATION
  Report Type: Spontaneous
  Country: US (occurrence: US)
  Receive Date: 20160301
  Receipt Date: 20201207
  Transmission Date: 20210113
  Serious: No
  Sender: FDA-Public Use
  Company Number: US-PFIZER INC-2016088042

PATIENT
  Age: 69 Year
  Sex: Female
  Weight: 52.15 kg

DRUGS (5)
  1. DILANTIN-125 [Suspect]
     Active Substance: PHENYTOIN
     Dosage: 5/8TH OF A TEASPOON THREE TIMES A DAY BY MOUTH
     Route: 048
  2. MINT [Suspect]
     Active Substance: MINT\SPEARMINT
     Dosage: UNK
  3. DILANTIN [Suspect]
     Active Substance: PHENYTOIN
     Dosage: 100 MG, 1X/DAY
  4. DILANTIN-125 [Suspect]
     Active Substance: PHENYTOIN
     Indication: SEIZURE
     Dosage: UNK
  5. DILANTIN-125 [Suspect]
     Active Substance: PHENYTOIN
     Dosage: ONE TEASPOON

REACTIONS (5)
  - Breast mass [Unknown]
  - Product complaint [Unknown]
  - Allergic reaction to excipient [Unknown]
  - Pharyngeal swelling [Unknown]
  - Drug ineffective [Unknown]
